FAERS Safety Report 9221475 (Version 1)
Quarter: 2013Q2

REPORT INFORMATION
  Report Type: Spontaneous
  Country: US (occurrence: None)
  Receive Date: 20130408
  Receipt Date: 20130408
  Transmission Date: 20140414
  Serious: Yes (Hospitalization)
  Sender: FDA-Public Use
  Company Number: None

PATIENT
  Age: 69 Year
  Sex: Male
  Weight: 90.7 kg

DRUGS (1)
  1. XARELTO [Suspect]

REACTIONS (4)
  - Post procedural haemorrhage [None]
  - Haemoglobin decreased [None]
  - Post procedural swelling [None]
  - Procedural site reaction [None]
